FAERS Safety Report 8332766-2 (Version None)
Quarter: 2012Q2

REPORT INFORMATION
  Report Type: 
  Country: None (occurrence: None)
  Receive Date: 20120503
  Receipt Date: 20120418
  Transmission Date: 20120825
  Serious: Yes (Other)
  Sender: FDA-Public Use
  Company Number: CN-JNJFOC-20110402333

PATIENT
  Sex: Male
  Weight: 7 kg

DRUGS (5)
  1. FLUCONAZOLE [Suspect]
     Indication: EXPOSURE DURING BREAST FEEDING
     Dosage: 3 TABLETS PER DAY
     Route: 063
     Dates: start: 20110311, end: 20110330
  2. FLUCONAZOLE [Suspect]
     Dosage: 3 TABLETS PER DAY
     Route: 063
     Dates: start: 20110221, end: 20110303
  3. MICONAZOLE NITRATE [Suspect]
     Indication: EXPOSURE DURING BREAST FEEDING
     Route: 063
     Dates: start: 20110311, end: 20110330
  4. MICONAZOLE NITRATE [Suspect]
     Route: 063
     Dates: start: 20110221, end: 20110303
  5. VACCINES [Suspect]
     Indication: PRODUCT USED FOR UNKNOWN INDICATION
     Route: 065
     Dates: start: 20110324, end: 20110324

REACTIONS (4)
  - PYREXIA [None]
  - BREAST FEEDING [None]
  - NASOPHARYNGITIS [None]
  - RASH ERYTHEMATOUS [None]
